FAERS Safety Report 6673709-7 (Version None)
Quarter: 2010Q1

REPORT INFORMATION
  Report Type: 
  Country: None (occurrence: None)
  Receive Date: 20100329
  Receipt Date: 20090911
  Transmission Date: 20100710
  Serious: Yes (Other)
  Sender: FDA-Public Use
  Company Number: 2009237946

PATIENT
  Age: 17 Year
  Sex: Female

DRUGS (2)
  1. GEODON [Suspect]
     Indication: BIPOLAR I DISORDER
     Dosage: 80 MG, 1X/DAY
     Dates: start: 20080101, end: 20090401
  2. CELEXA [Concomitant]

REACTIONS (1)
  - DYSKINESIA [None]
